FAERS Safety Report 8222306-0 (Version None)
Quarter: 2012Q1

REPORT INFORMATION
  Report Type: 
  Country: None (occurrence: None)
  Receive Date: 20120320
  Receipt Date: 20120315
  Transmission Date: 20120608
  Serious: Yes (Other)
  Sender: FDA-Public Use
  Company Number: JP-GLAXOSMITHKLINE-B0789002A

PATIENT
  Age: 76 Year
  Sex: Female

DRUGS (2)
  1. ZANTAC [Suspect]
     Indication: PRODUCT USED FOR UNKNOWN INDICATION
     Route: 048
     Dates: start: 19980101
  2. ALDACTONE [Suspect]
     Route: 048

REACTIONS (4)
  - CARDIOMYOPATHY [None]
  - MUSCULOSKELETAL STIFFNESS [None]
  - FEELING ABNORMAL [None]
  - PARAESTHESIA ORAL [None]
